FAERS Safety Report 7935579-6 (Version None)
Quarter: 2011Q4

REPORT INFORMATION
  Report Type: 
  Country: None (occurrence: None)
  Receive Date: 20111123
  Receipt Date: 20111117
  Transmission Date: 20120403
  Serious: No
  Sender: FDA-Public Use
  Company Number: US-BIOGENIDEC-2011BI044558

PATIENT
  Age: 67 Year
  Sex: Female

DRUGS (3)
  1. TRAZODONE HCL [Concomitant]
     Indication: DEPRESSION
     Dates: start: 19980101
  2. AVONEX [Suspect]
     Indication: MULTIPLE SCLEROSIS
     Route: 030
     Dates: start: 20110909
  3. SEROQUEL [Concomitant]
     Indication: DEPRESSION
     Dates: start: 19980101

REACTIONS (7)
  - BALANCE DISORDER [None]
  - GAIT DISTURBANCE [None]
  - ARTHRALGIA [None]
  - BURNING SENSATION [None]
  - TREMOR [None]
  - ASTHENIA [None]
  - OEDEMA PERIPHERAL [None]
